FAERS Safety Report 24428813 (Version 1)
Quarter: 2024Q4

REPORT INFORMATION
  Report Type: Spontaneous
  Country: US (occurrence: US)
  Receive Date: 20241011
  Receipt Date: 20241011
  Transmission Date: 20250115
  Serious: No
  Sender: BAUSCH AND LOMB
  Company Number: US-BAUSCH-BL-2024-015105

PATIENT
  Age: 22 Year
  Sex: Male

DRUGS (2)
  1. ARAZLO [Suspect]
     Active Substance: TAZAROTENE
     Indication: Acne
     Route: 065
     Dates: start: 202312, end: 20240409
  2. ARAZLO [Suspect]
     Active Substance: TAZAROTENE
     Indication: Keratosis pilaris
     Route: 065
     Dates: start: 2024

REACTIONS (5)
  - Application site dryness [Unknown]
  - Application site pruritus [Unknown]
  - Product temperature excursion issue [Unknown]
  - Inappropriate schedule of product administration [Unknown]
  - Intentional product use issue [Unknown]
